FAERS Safety Report 7288942-3 (Version None)
Quarter: 2011Q1

REPORT INFORMATION
  Report Type: 
  Country: None (occurrence: None)
  Receive Date: 20110211
  Receipt Date: 20110211
  Transmission Date: 20110831
  Serious: Yes (Death)
  Sender: FDA-Public Use
  Company Number: DE-EISAI INC-E2020-08409-CLI-DE

PATIENT
  Sex: Female
  Weight: 50 kg

DRUGS (1)
  1. ARICEPT [Suspect]
     Indication: DEMENTIA
     Route: 048
     Dates: start: 20091217, end: 20101001

REACTIONS (1)
  - CARDIAC ARREST [None]
